FAERS Safety Report 6195519-X (Version None)
Quarter: 2009Q2

REPORT INFORMATION
  Report Type: 
  Country: None (occurrence: None)
  Receive Date: 20090519
  Receipt Date: 20090511
  Transmission Date: 20091009
  Serious: Yes (Disabling)
  Sender: FDA-Public Use
  Company Number: PHEH2009US03352

PATIENT
  Sex: Female
  Weight: 58.05 kg

DRUGS (12)
  1. RECLAST [Suspect]
     Indication: OSTEOARTHRITIS
     Dosage: 5MG YEARLY
     Route: 042
     Dates: start: 20090227
  2. MULTI-VITAMINS [Concomitant]
  3. CALCIUM W/VITAMIN D NOS [Concomitant]
  4. OMEPRAZOLE [Concomitant]
     Dosage: 40MG BID
  5. PLAVIX [Concomitant]
     Dosage: 75MG DAILY
  6. LISINOPRIL [Concomitant]
     Dosage: 20MG DAILY
  7. REGLAN [Concomitant]
     Dosage: 10MG TID
  8. PRANDIN ^KUHN^ [Concomitant]
     Dosage: .5MG DAILY
  9. ASPIRIN [Concomitant]
     Dosage: 81MG 2 TABLETS DAILY
  10. GLIMEPIRIDE [Concomitant]
     Dosage: 4MG DAILY
  11. PRAVACHOL [Concomitant]
     Dosage: 20MG DAILY
  12. FORTICAL /KOR/ [Concomitant]
     Dosage: 200 ACT DAILY

REACTIONS (5)
  - ARTHRALGIA [None]
  - FEELING HOT [None]
  - HEADACHE [None]
  - NECK PAIN [None]
  - PAIN [None]
